FAERS Safety Report 5653124-5 (Version None)
Quarter: 2008Q1

REPORT INFORMATION
  Report Type: 
  Country: None (occurrence: None)
  Receive Date: 20080306
  Receipt Date: 20080306
  Transmission Date: 20080703
  Serious: Yes (Death)
  Sender: FDA-Public Use
  Company Number: None

PATIENT
  Age: 66 Year
  Sex: Male

DRUGS (1)
  1. HEPARIN [Suspect]
     Indication: THROMBOSIS
     Dosage: OTHER
     Route: 050
     Dates: start: 20050413, end: 20050416

REACTIONS (2)
  - NIGHT SWEATS [None]
  - POST PROCEDURAL COMPLICATION [None]
